FAERS Safety Report 14824783 (Version 1)
Quarter: 2018Q2

REPORT INFORMATION
  Report Type: Spontaneous
  Country: US (occurrence: US)
  Receive Date: 20180430
  Receipt Date: 20180430
  Transmission Date: 20180711
  Serious: Yes (Other)
  Sender: FDA-Public Use
  Company Number: US-CONCORDIA PHARMACEUTICALS INC.-GSH201804-001436

PATIENT
  Age: 43 Year
  Sex: Female

DRUGS (2)
  1. HYDROXYCHLOROQUINE [Suspect]
     Active Substance: HYDROXYCHLOROQUINE
     Indication: SYSTEMIC LUPUS ERYTHEMATOSUS
     Route: 048
  2. AZATHIOPRINE. [Suspect]
     Active Substance: AZATHIOPRINE
     Indication: SYSTEMIC LUPUS ERYTHEMATOSUS
     Route: 048

REACTIONS (9)
  - Systemic lupus erythematosus [Unknown]
  - Condition aggravated [Unknown]
  - Antineutrophil cytoplasmic antibody positive [Unknown]
  - Blood creatinine increased [Unknown]
  - Glomerulonephritis rapidly progressive [Unknown]
  - Drug ineffective [Unknown]
  - Lupus nephritis [Unknown]
  - Proteinuria [Unknown]
  - Renal failure [Recovering/Resolving]
